FAERS Safety Report 6721921-0 (Version None)
Quarter: 2010Q2

REPORT INFORMATION
  Report Type: 
  Country: None (occurrence: None)
  Receive Date: 20100512
  Receipt Date: 20100505
  Transmission Date: 20101027
  Serious: Yes (Hospitalization, Disabling)
  Sender: FDA-Public Use
  Company Number: A0786228A

PATIENT
  Age: 59 Year
  Sex: Female

DRUGS (1)
  1. AVANDIA [Suspect]
     Indication: DIABETES MELLITUS
     Dosage: 4U TWICE PER DAY
     Dates: start: 20050501, end: 20070501

REACTIONS (7)
  - AMNESIA [None]
  - CEREBROVASCULAR ACCIDENT [None]
  - COGNITIVE DISORDER [None]
  - HEMIPARESIS [None]
  - IMMOBILE [None]
  - INJURY [None]
  - MOVEMENT DISORDER [None]
